FAERS Safety Report 6782830-4 (Version None)
Quarter: 2010Q2

REPORT INFORMATION
  Report Type: 
  Country: None (occurrence: None)
  Receive Date: 20100617
  Receipt Date: 20100607
  Transmission Date: 20101027
  Serious: Yes (Hospitalization, Other)
  Sender: FDA-Public Use
  Company Number: 2010AL003336

PATIENT
  Age: 4 Year
  Sex: Female
  Weight: 36 kg

DRUGS (1)
  1. ACETAMINOPHEN + CODEINE PHOSPHATE ORAL SOLUTION USP, 120 MG/12 MG 5 ML [Suspect]
     Indication: PAIN
     Dosage: Q4H

REACTIONS (17)
  - ACUTE HEPATIC FAILURE [None]
  - ASTHMA [None]
  - AZOTAEMIA [None]
  - BODY TEMPERATURE INCREASED [None]
  - COAGULOPATHY [None]
  - EOSINOPHILIA [None]
  - HEPATIC ENCEPHALOPATHY [None]
  - HEPATITIS [None]
  - PLEURAL EFFUSION [None]
  - PULMONARY OEDEMA [None]
  - RASH ERYTHEMATOUS [None]
  - RASH MACULO-PAPULAR [None]
  - RENAL FAILURE [None]
  - RENAL TUBULAR NECROSIS [None]
  - URTICARIA [None]
  - VIRAL INFECTION [None]
  - VOMITING [None]
